FAERS Safety Report 24323355 (Version 1)
Quarter: 2024Q3

REPORT INFORMATION
  Report Type: Spontaneous
  Country: US (occurrence: None)
  Receive Date: 20240913
  Receipt Date: 20240913
  Transmission Date: 20241017
  Serious: Yes (Other)
  Sender: Public
  Company Number: None

PATIENT
  Age: 74 Year
  Sex: Female

DRUGS (3)
  1. KISQALI [Suspect]
     Active Substance: RIBOCICLIB
     Indication: Breast cancer
     Dosage: 600 MG DAILY ORAL
     Route: 048
     Dates: start: 20231012
  2. SYNTHROID [Concomitant]
     Active Substance: LEVOTHYROXINE SODIUM
  3. EXEMESTANE [Concomitant]
     Active Substance: EXEMESTANE

REACTIONS (4)
  - Dry throat [None]
  - Facial nerve disorder [None]
  - Neuralgia [None]
  - Electric shock sensation [None]
